FAERS Safety Report 6630797-1 (Version None)
Quarter: 2010Q1

REPORT INFORMATION
  Report Type: 
  Country: None (occurrence: None)
  Receive Date: 20100311
  Receipt Date: 20100302
  Transmission Date: 20100710
  Serious: Yes (Death, Hospitalization)
  Sender: FDA-Public Use
  Company Number: US-BAXTER-2010BH004298

PATIENT
  Age: 81 Year
  Sex: Female

DRUGS (4)
  1. DIANEAL [Suspect]
     Indication: PERITONEAL DIALYSIS
     Route: 033
     Dates: end: 20100122
  2. DIANEAL [Suspect]
     Route: 033
     Dates: end: 20100122
  3. DIANEAL [Suspect]
     Indication: PERITONEAL DIALYSIS
     Route: 033
     Dates: end: 20100122
  4. DIANEAL [Suspect]
     Route: 033
     Dates: end: 20100122

REACTIONS (2)
  - DEATH [None]
  - PERITONITIS [None]
